FAERS Safety Report 19220870 (Version 2)
Quarter: 2021Q2

REPORT INFORMATION
  Report Type: Spontaneous
  Country: AT (occurrence: AT)
  Receive Date: 20210506
  Receipt Date: 20210622
  Transmission Date: 20210717
  Serious: Yes (Death, Other)
  Sender: FDA-Public Use
  Company Number: AT-VELOXIS PHARMACEUTICALS-2021VELAT-000301

PATIENT
  Age: 55 Year
  Sex: Male

DRUGS (3)
  1. ENVARSUS XR [Suspect]
     Active Substance: TACROLIMUS
     Indication: IMMUNOSUPPRESSANT DRUG THERAPY
     Dosage: UNK
     Route: 065
  2. MYCOPHENOLATE MOFETIL. [Suspect]
     Active Substance: MYCOPHENOLATE MOFETIL
     Indication: IMMUNOSUPPRESSANT DRUG THERAPY
     Dosage: UNK
     Route: 065
  3. ALEMTUZUMAB [Suspect]
     Active Substance: ALEMTUZUMAB
     Indication: IMMUNOSUPPRESSANT DRUG THERAPY
     Dosage: UNK
     Route: 065

REACTIONS (10)
  - Hypertension [Unknown]
  - Transplant rejection [Unknown]
  - Nephropathy [Unknown]
  - Drug intolerance [Unknown]
  - Gastric cancer [Fatal]
  - Graft loss [Unknown]
  - Off label use [Unknown]
  - Emphysema [Unknown]
  - Renal failure [Unknown]
  - Hyperlipidaemia [Unknown]
